FAERS Safety Report 14447832 (Version 1)
Quarter: 2018Q1

REPORT INFORMATION
  Report Type: Spontaneous
  Country: US (occurrence: US)
  Receive Date: 20180126
  Receipt Date: 20180126
  Transmission Date: 20180509
  Serious: No
  Sender: FDA-Public Use
  Company Number: US-CELGENEUS-USA-20171001515

PATIENT
  Sex: Male

DRUGS (2)
  1. ENASIDENIB [Suspect]
     Active Substance: ENASIDENIB
     Indication: ACUTE MYELOID LEUKAEMIA
     Dosage: 100 MILLIGRAM
     Route: 048
  2. ENASIDENIB [Suspect]
     Active Substance: ENASIDENIB
     Dosage: 50 MILLIGRAM
     Route: 048

REACTIONS (2)
  - Neutropenia [Unknown]
  - Full blood count decreased [Unknown]
